FAERS Safety Report 23486873 (Version 3)
Quarter: 2024Q1

REPORT INFORMATION
  Report Type: Spontaneous
  Country: CN (occurrence: CN)
  Receive Date: 20240206
  Receipt Date: 20240209
  Transmission Date: 20240410
  Serious: Yes (Life-Threatening, Hospitalization, Other)
  Sender: FDA-Public Use
  Company Number: CN-PFIZER INC-202400030441

PATIENT
  Age: 61 Year
  Sex: Male

DRUGS (15)
  1. RITUXIMAB [Suspect]
     Active Substance: RITUXIMAB
     Indication: Non-Hodgkin^s lymphoma
     Dosage: UNK UNK, CYCLIC
     Dates: start: 2020, end: 2021
  2. RITUXIMAB [Suspect]
     Active Substance: RITUXIMAB
     Dosage: UNK UNK, CYCLIC
     Dates: start: 20210208
  3. RITUXIMAB [Suspect]
     Active Substance: RITUXIMAB
     Dosage: UNK UNK, CYCLIC
     Dates: start: 20210301
  4. DOXORUBICIN HYDROCHLORIDE [Concomitant]
     Active Substance: DOXORUBICIN HYDROCHLORIDE
     Indication: Non-Hodgkin^s lymphoma
     Dosage: UNK UNK, CYCLIC
     Dates: start: 2020, end: 2021
  5. DOXORUBICIN HYDROCHLORIDE [Concomitant]
     Active Substance: DOXORUBICIN HYDROCHLORIDE
     Dosage: UNK UNK, CYCLIC
     Dates: start: 20210208
  6. DOXORUBICIN HYDROCHLORIDE [Concomitant]
     Active Substance: DOXORUBICIN HYDROCHLORIDE
     Dosage: UNK UNK, CYCLIC
     Dates: start: 20210301
  7. CYCLOPHOSPHAMIDE [Concomitant]
     Active Substance: CYCLOPHOSPHAMIDE
     Indication: Non-Hodgkin^s lymphoma
     Dosage: UNK UNK, CYCLIC
     Dates: start: 2020, end: 2021
  8. CYCLOPHOSPHAMIDE [Concomitant]
     Active Substance: CYCLOPHOSPHAMIDE
     Dosage: UNK UNK, CYCLIC
     Dates: start: 20210208
  9. CYCLOPHOSPHAMIDE [Concomitant]
     Active Substance: CYCLOPHOSPHAMIDE
     Dosage: UNK UNK, CYCLIC
     Dates: start: 20210301
  10. PREDNISOLONE [Concomitant]
     Active Substance: PREDNISOLONE
     Indication: Non-Hodgkin^s lymphoma
     Dosage: UNK UNK, CYCLIC
     Dates: start: 2020, end: 2021
  11. PREDNISOLONE [Concomitant]
     Active Substance: PREDNISOLONE
     Dosage: UNK UNK, CYCLIC
     Dates: start: 20210208
  12. PREDNISOLONE [Concomitant]
     Active Substance: PREDNISOLONE
     Dosage: UNK UNK, CYCLIC
     Dates: start: 20210301
  13. VINCRISTINE [Concomitant]
     Active Substance: VINCRISTINE
     Indication: Non-Hodgkin^s lymphoma
     Dosage: UNK UNK, CYCLIC
     Dates: start: 2020, end: 2021
  14. VINCRISTINE [Concomitant]
     Active Substance: VINCRISTINE
     Dosage: UNK UNK, CYCLIC
     Dates: start: 20210208
  15. VINCRISTINE [Concomitant]
     Active Substance: VINCRISTINE
     Dosage: UNK UNK, CYCLIC
     Dates: start: 20210301

REACTIONS (1)
  - Pneumocystis jirovecii pneumonia [Recovered/Resolved]
